FAERS Safety Report 20710640 (Version 7)
Quarter: 2023Q4

REPORT INFORMATION
  Report Type: Spontaneous
  Country: FR (occurrence: FR)
  Receive Date: 20220414
  Receipt Date: 20231202
  Transmission Date: 20240110
  Serious: Yes (Death, Life-Threatening, Other)
  Sender: FDA-Public Use
  Company Number: FR-LUPIN PHARMACEUTICALS INC.-2022-05600

PATIENT

DRUGS (2)
  1. TRAMADOL HYDROCHLORIDE [Suspect]
     Active Substance: TRAMADOL HYDROCHLORIDE
     Indication: Product used for unknown indication
     Dosage: UNK (TABLET)
     Route: 064
  2. TRAMADOL HYDROCHLORIDE [Suspect]
     Active Substance: TRAMADOL HYDROCHLORIDE
     Dosage: UNK (TAKEN 60 TO 90ML CONTAINING TABLETS OF TRAMADOL)
     Route: 048

REACTIONS (10)
  - Cardiac disorder [Fatal]
  - Respiratory depression [Fatal]
  - Coma [Fatal]
  - Seizure [Fatal]
  - Cyanosis [Fatal]
  - Visceral congestion [Fatal]
  - Multi-organ disorder [Fatal]
  - Accidental exposure to product by child [Fatal]
  - Toxicity to various agents [Fatal]
  - Foetal exposure during pregnancy [Unknown]
